FAERS Safety Report 11564056 (Version 1)
Quarter: 2015Q3

REPORT INFORMATION
  Report Type: Spontaneous
  Country: ES (occurrence: ES)
  Receive Date: 20150928
  Receipt Date: 20150928
  Transmission Date: 20151125
  Serious: Yes (Hospitalization, Other)
  Sender: FDA-Public Use
  Company Number: ES-MYLANLABS-2015M1032563

PATIENT

DRUGS (9)
  1. OXALIPLATIN. [Suspect]
     Active Substance: OXALIPLATIN
     Indication: CHEMOTHERAPY
     Dosage: 85 MG/M2 IN 2 HOURS
     Route: 041
     Dates: start: 200508
  2. FLUOROURACIL. [Suspect]
     Active Substance: FLUOROURACIL
     Dosage: 2400 MG/M2 IN 46 HOURS
     Route: 041
     Dates: start: 200508
  3. PANITUMUMAB [Suspect]
     Active Substance: PANITUMUMAB
     Indication: CHEMOTHERAPY
     Route: 065
     Dates: start: 201302, end: 201309
  4. FLUOROURACIL. [Suspect]
     Active Substance: FLUOROURACIL
     Dosage: UNK
     Route: 065
     Dates: start: 200508
  5. FOLINIC ACID [Suspect]
     Active Substance: LEUCOVORIN
     Indication: CHEMOTHERAPY
     Dosage: 200 MG/M2
     Route: 065
     Dates: start: 200508
  6. FLUOROURACIL. [Suspect]
     Active Substance: FLUOROURACIL
     Indication: CHEMOTHERAPY
     Dosage: 400 MG/M2 ON DAY 1
     Route: 040
     Dates: start: 200508
  7. FOLINIC ACID [Suspect]
     Active Substance: LEUCOVORIN
     Route: 065
     Dates: start: 200508
  8. BEVACIZUMAB [Suspect]
     Active Substance: BEVACIZUMAB
     Indication: CHEMOTHERAPY
     Dosage: UNK
     Route: 065
     Dates: start: 200909
  9. IRINOTECAN [Suspect]
     Active Substance: IRINOTECAN
     Indication: CHEMOTHERAPY
     Dosage: 180 MG/M2 IN 2 HOURS
     Route: 041
     Dates: start: 200701

REACTIONS (13)
  - Fatigue [Unknown]
  - Asthenia [Unknown]
  - Radiculopathy [Unknown]
  - Performance status decreased [Unknown]
  - Acne [Unknown]
  - Palmar-plantar erythrodysaesthesia syndrome [Unknown]
  - Diarrhoea [Unknown]
  - Leukopenia [Unknown]
  - Nail disorder [Unknown]
  - Mucosal inflammation [Unknown]
  - Neutropenia [Unknown]
  - Dyspnoea [Unknown]
  - Paraesthesia [Unknown]
